FAERS Safety Report 7843277-2 (Version None)
Quarter: 2011Q4

REPORT INFORMATION
  Report Type: 
  Country: None (occurrence: None)
  Receive Date: 20111024
  Receipt Date: 20111024
  Transmission Date: 20120403
  Serious: Yes (Other)
  Sender: FDA-Public Use
  Company Number: None

PATIENT
  Age: 44 Year
  Sex: Male
  Weight: 120.6568 kg

DRUGS (1)
  1. METHOTREXATE [Suspect]
     Indication: PSORIATIC ARTHROPATHY
     Dosage: 6 TABLETS WEEKLY BY MOUTH SEVERAL YEARS
     Route: 048

REACTIONS (1)
  - HEPATIC CIRRHOSIS [None]
